FAERS Safety Report 24463305 (Version 2)
Quarter: 2025Q3

REPORT INFORMATION
  Report Type: Report from Study
  Country: US (occurrence: US)
  Receive Date: 20241018
  Receipt Date: 20250803
  Transmission Date: 20251021
  Serious: Yes (Hospitalization)
  Sender: ALEXION PHARMACEUTICALS
  Company Number: US-AstraZeneca-CH-00722694A

PATIENT
  Sex: Female

DRUGS (1)
  1. ACALABRUTINIB [Suspect]
     Active Substance: ACALABRUTINIB
     Indication: Chronic lymphocytic leukaemia
     Dosage: 100 MILLIGRAM, BID

REACTIONS (7)
  - Back injury [Unknown]
  - Headache [Unknown]
  - Immune system disorder [Unknown]
  - Depression [Unknown]
  - Haemorrhage [Unknown]
  - Hypersensitivity [Unknown]
  - Intentional dose omission [Unknown]
